FAERS Safety Report 9242174 (Version 1)
Quarter: 2013Q2

REPORT INFORMATION
  Report Type: Spontaneous
  Country: US (occurrence: US)
  Receive Date: 20130419
  Receipt Date: 20130419
  Transmission Date: 20140414
  Serious: No
  Sender: FDA-Public Use
  Company Number: US-PFIZER INC-2013120587

PATIENT
  Age: 68 Year
  Sex: Female
  Weight: 54.88 kg

DRUGS (4)
  1. EFFEXOR [Suspect]
     Indication: DEPRESSION
     Dosage: 75 MG, UNK
     Route: 048
     Dates: start: 2012, end: 2013
  2. EFFEXOR [Suspect]
     Indication: ANXIETY
     Dosage: 75MG IN THE MORNING AND 37.5MG AT NIGHT
     Route: 048
     Dates: start: 2013, end: 2013
  3. EFFEXOR [Suspect]
     Dosage: 75 MG, 2X/DAY
     Route: 048
     Dates: start: 2013, end: 2013
  4. EFFEXOR [Suspect]
     Dosage: 75MG IN THE MORNING AND 37.5MG AT NIGHT
     Route: 048
     Dates: start: 2013

REACTIONS (10)
  - Depression [Unknown]
  - Drug ineffective [Unknown]
  - Visual field defect [Unknown]
  - Feeling abnormal [Unknown]
  - Muscular weakness [Unknown]
  - Paraesthesia [Unknown]
  - Headache [Unknown]
  - Chills [Unknown]
  - Decreased appetite [Recovered/Resolved]
  - Nausea [Recovered/Resolved]
